FAERS Safety Report 4768667-6 (Version None)
Quarter: 2005Q3

REPORT INFORMATION
  Report Type: 
  Country: None (occurrence: None)
  Receive Date: 20050914
  Receipt Date: 20050902
  Transmission Date: 20060218
  Serious: Yes (Death, Hospitalization)
  Sender: FDA-Public Use
  Company Number: CN-JNJFOC-20050900649

PATIENT
  Age: 3 Year
  Sex: Male
  Weight: 10 kg

DRUGS (3)
  1. TOPAMAX [Suspect]
  2. TOPAMAX [Suspect]
  3. TOPAMAX [Suspect]
     Indication: EPILEPSY

REACTIONS (1)
  - PULMONARY HAEMORRHAGE [None]
